FAERS Safety Report 10641277 (Version 1)
Quarter: 2014Q4

REPORT INFORMATION
  Report Type: Spontaneous
  Country: US (occurrence: US)
  Receive Date: 20141209
  Receipt Date: 20141209
  Transmission Date: 20150529
  Serious: No
  Sender: FDA-Public Use
  Company Number: US-BAYER-2014-178133

PATIENT
  Age: 33 Year
  Sex: Female

DRUGS (1)
  1. MIRENA [Suspect]
     Active Substance: LEVONORGESTREL
     Dosage: 20 ?G/D, CONT
     Route: 015
     Dates: start: 201411

REACTIONS (3)
  - Metrorrhagia [None]
  - Breast pain [Not Recovered/Not Resolved]
  - Pregnancy with contraceptive device [None]

NARRATIVE: CASE EVENT DATE: 2014
